FAERS Safety Report 8469851-0 (Version None)
Quarter: 2012Q2

REPORT INFORMATION
  Report Type: 
  Country: None (occurrence: None)
  Receive Date: 20120627
  Receipt Date: 20120622
  Transmission Date: 20120825
  Serious: Yes (Life-Threatening, Other)
  Sender: FDA-Public Use
  Company Number: PHHY2012GB053691

PATIENT
  Age: 89 Year
  Sex: Female
  Weight: 60 kg

DRUGS (2)
  1. INSULIN [Concomitant]
  2. DOXYCYCLINE [Suspect]
     Dosage: 100 MG, BID
     Route: 048
     Dates: start: 20120606, end: 20120608

REACTIONS (1)
  - HYPERGLYCAEMIA [None]
